FAERS Safety Report 4867760-7 (Version None)
Quarter: 2005Q4

REPORT INFORMATION
  Report Type: 
  Country: None (occurrence: None)
  Receive Date: 20051227
  Receipt Date: 20051227
  Transmission Date: 20060501
  Serious: Yes (Other)
  Sender: FDA-Public Use
  Company Number: None

PATIENT
  Age: 16 Year
  Sex: Male
  Weight: 73.0291 kg

DRUGS (1)
  1. NORTRIPTYLINE HCL [Suspect]
     Dosage: 25 MG TWO QHS PO
     Route: 048
     Dates: start: 20051026, end: 20051203

REACTIONS (3)
  - AGGRESSION [None]
  - ANGER [None]
  - MOOD SWINGS [None]
